FAERS Safety Report 11242596 (Version 2)
Quarter: 2015Q3

REPORT INFORMATION
  Report Type: Spontaneous
  Country: GB (occurrence: GB)
  Receive Date: 20150707
  Receipt Date: 20150804
  Transmission Date: 20151125
  Serious: Yes (Hospitalization)
  Sender: FDA-Public Use
  Company Number: GB-ACCORD-031853

PATIENT
  Age: 83 Year

DRUGS (11)
  1. RAMIPRIL. [Suspect]
     Active Substance: RAMIPRIL
     Indication: PRODUCT USED FOR UNKNOWN INDICATION
  2. VILDAGLIPTIN [Concomitant]
     Active Substance: VILDAGLIPTIN
  3. RANITIDINE [Concomitant]
     Active Substance: RANITIDINE\RANITIDINE HYDROCHLORIDE
  4. DIGOXIN. [Concomitant]
     Active Substance: DIGOXIN
     Indication: ATRIAL FIBRILLATION
  5. TAMSULOSIN/TAMSULOSIN HYDROCHLORIDE [Concomitant]
  6. BISOPROLOL [Concomitant]
     Active Substance: BISOPROLOL
  7. BUPRENORPHINE. [Concomitant]
     Active Substance: BUPRENORPHINE
  8. DIAZEPAM. [Concomitant]
     Active Substance: DIAZEPAM
  9. ACETYLSALICYLIC ACID [Concomitant]
     Active Substance: ASPIRIN
     Indication: ATRIAL FIBRILLATION
  10. FUROSEMIDE. [Concomitant]
     Active Substance: FUROSEMIDE
  11. PAROXETINE [Concomitant]
     Active Substance: PAROXETINE\PAROXETINE HYDROCHLORIDE

REACTIONS (2)
  - Angioedema [Recovered/Resolved with Sequelae]
  - Acute kidney injury [Recovered/Resolved]
